FAERS Safety Report 20580566 (Version 1)
Quarter: 2022Q1

REPORT INFORMATION
  Report Type: Spontaneous
  Country: ES (occurrence: ES)
  Receive Date: 20220311
  Receipt Date: 20220311
  Transmission Date: 20220423
  Serious: Yes (Death, Hospitalization, Other)
  Sender: FDA-Public Use
  Company Number: ES-AMGEN-ESPSP2022040656

PATIENT

DRUGS (2)
  1. CARFILZOMIB [Suspect]
     Active Substance: CARFILZOMIB
     Indication: Plasma cell myeloma
     Dosage: UNK
     Route: 065
  2. FILGRASTIM [Suspect]
     Active Substance: FILGRASTIM
     Indication: Product used for unknown indication
     Dosage: UNK
     Route: 065

REACTIONS (21)
  - Death [Fatal]
  - Acute respiratory distress syndrome [Fatal]
  - Hospitalisation [Unknown]
  - Cardiac failure [Unknown]
  - Arrhythmia [Unknown]
  - Acute myocardial infarction [Unknown]
  - Myocarditis [Unknown]
  - Cerebrovascular accident [Unknown]
  - Ischaemic stroke [Unknown]
  - Haemorrhagic stroke [Unknown]
  - Acute kidney injury [Unknown]
  - Sepsis [Unknown]
  - Pneumonia bacterial [Unknown]
  - Disseminated intravascular coagulation [Unknown]
  - Embolism [Unknown]
  - Deep vein thrombosis [Unknown]
  - Pulmonary embolism [Unknown]
  - Shock [Unknown]
  - Multiple organ dysfunction syndrome [Unknown]
  - SARS-CoV-2 test positive [Unknown]
  - Peripheral arterial occlusive disease [Unknown]
